FAERS Safety Report 4601160-X (Version None)
Quarter: 2005Q1

REPORT INFORMATION
  Report Type: 
  Country: None (occurrence: None)
  Receive Date: 20050204
  Receipt Date: 20041004
  Transmission Date: 20050727
  Serious: Yes (Other)
  Sender: FDA-Public Use
  Company Number: US-2004-026136

PATIENT
  Age: 38 Year
  Sex: Female

DRUGS (1)
  1. MIRENA [Suspect]
     Indication: CONTRACEPTION
     Dosage: 20 UG DAY, CONT , INTRA-UTERINE
     Route: 015
     Dates: start: 20040409, end: 20040630

REACTIONS (2)
  - POST PROCEDURAL PAIN [None]
  - UTERINE PERFORATION [None]
